FAERS Safety Report 8094385-5 (Version None)
Quarter: 2012Q1

REPORT INFORMATION
  Report Type: 
  Country: None (occurrence: None)
  Receive Date: 20120130
  Receipt Date: 20120124
  Transmission Date: 20120608
  Serious: Yes (Other)
  Sender: FDA-Public Use
  Company Number: MX-SANOFI-AVENTIS-2012SA005023

PATIENT
  Age: 67 Year
  Sex: Male
  Weight: 112 kg

DRUGS (8)
  1. AMARYL [Suspect]
     Route: 048
     Dates: start: 20020601, end: 20110901
  2. AMARYL [Suspect]
     Route: 048
     Dates: start: 20110901, end: 20111101
  3. ATORVASTATIN [Concomitant]
     Route: 048
     Dates: start: 20020101
  4. LISINOPRIL [Concomitant]
     Route: 048
  5. AMARYL [Suspect]
     Route: 048
     Dates: start: 20111101, end: 20120116
  6. LASIX [Concomitant]
     Indication: DIURETIC THERAPY
     Route: 048
  7. ATORVASTATIN [Concomitant]
     Route: 048
     Dates: start: 20020101
  8. COUMADIN [Concomitant]
     Indication: THROMBOSIS PROPHYLAXIS
     Route: 048

REACTIONS (2)
  - HYPERGLYCAEMIA [None]
  - ATRIAL FIBRILLATION [None]
